FAERS Safety Report 6201611-3 (Version None)
Quarter: 2009Q2

REPORT INFORMATION
  Report Type: 
  Country: None (occurrence: None)
  Receive Date: 20090526
  Receipt Date: 20090514
  Transmission Date: 20091009
  Serious: No
  Sender: FDA-Public Use
  Company Number: US-B.I. PHARMACEUTICALS,INC./RIDGEFIELD-2009-BP-06043BP

PATIENT
  Age: 75 Year
  Sex: Male

DRUGS (8)
  1. FLOMAX [Suspect]
     Indication: PROSTATE CANCER
     Dosage: .8MG
     Route: 048
     Dates: start: 20090330
  2. INSULIN [Concomitant]
     Indication: DIABETES MELLITUS
     Route: 058
  3. IBUPROFEN [Concomitant]
     Indication: PAIN
     Dosage: 600MG
     Route: 048
  4. BENICAR HCT [Concomitant]
     Indication: BLOOD PRESSURE INCREASED
     Dosage: 40MG
     Route: 048
  5. VERAPAMIL [Concomitant]
     Indication: CARDIAC DISORDER
     Dosage: 180MG
     Route: 048
  6. B12 SHOT [Concomitant]
     Indication: PERNICIOUS ANAEMIA
  7. SIMVASTATIN [Concomitant]
     Indication: BLOOD CHOLESTEROL INCREASED
     Dosage: 40MG
     Route: 048
  8. FE SUPPLEMENT [Concomitant]
     Indication: PERNICIOUS ANAEMIA
     Route: 048

REACTIONS (1)
  - FATIGUE [None]
